FAERS Safety Report 8017017-0 (Version None)
Quarter: 2012Q1

REPORT INFORMATION
  Report Type: 
  Country: None (occurrence: None)
  Receive Date: 20120102
  Receipt Date: 20111228
  Transmission Date: 20120608
  Serious: Yes (Hospitalization)
  Sender: FDA-Public Use
  Company Number: PHEH2011US012690

PATIENT
  Age: 11 Year
  Sex: Female
  Weight: 46.712 kg

DRUGS (2)
  1. TOBRAMYCIN [Suspect]
     Dosage: 300 MG, BID, 28 DAYS OFF AND 28 DAYS ON
     Dates: start: 20111109
  2. PULMOZYME [Concomitant]

REACTIONS (2)
  - DYSPNOEA [None]
  - PSEUDOMONAS INFECTION [None]
